FAERS Safety Report 8599329-5 (Version None)
Quarter: 2012Q3

REPORT INFORMATION
  Report Type: 
  Country: None (occurrence: None)
  Receive Date: 20120816
  Receipt Date: 20110830
  Transmission Date: 20120928
  Serious: Yes (Other)
  Sender: FDA-Public Use
  Company Number: US-AMGEN-USASP2011044445

PATIENT
  Age: 32 Year
  Sex: Female

DRUGS (3)
  1. NEUPOGEN [Suspect]
     Indication: NEUTROPENIA
     Dates: start: 20110101, end: 20110101
  2. ADRIAMYCIN PFS [Concomitant]
     Indication: BREAST CANCER
  3. ANTINEOPLASTIC AGENTS [Concomitant]
     Indication: BREAST CANCER

REACTIONS (6)
  - BONE PAIN [None]
  - HYPERHIDROSIS [None]
  - PYREXIA [None]
  - TACHYCARDIA [None]
  - CHILLS [None]
  - DYSPNOEA [None]
